FAERS Safety Report 4390784-3 (Version None)
Quarter: 2004Q3

REPORT INFORMATION
  Report Type: 
  Country: None (occurrence: None)
  Receive Date: 20040706
  Receipt Date: 20040706
  Transmission Date: 20050211
  Serious: Yes (Death)
  Sender: FDA-Public Use
  Company Number: None

PATIENT
  Age: 58 Year
  Sex: Male
  Weight: 86 kg

DRUGS (2)
  1. STAVUDINE 400 MG [Suspect]
     Indication: HIV INFECTION
     Dosage: 40 MG BID ORAL
     Route: 048
     Dates: start: 20030919, end: 20040608
  2. LOPINAVIRRITONAVIR 133.3/33.3 [Suspect]
     Indication: HIV INFECTION
     Dosage: 3 CAPSUL BID ORAL
     Route: 048
     Dates: start: 20030919, end: 20040608

REACTIONS (2)
  - CARDIAC ARREST [None]
  - PANCREATITIS NECROTISING [None]
